FAERS Safety Report 15029708 (Version 1)
Quarter: 2018Q2

REPORT INFORMATION
  Report Type: Spontaneous
  Country: DE (occurrence: DE)
  Receive Date: 20180619
  Receipt Date: 20180619
  Transmission Date: 20180711
  Serious: Yes (Hospitalization)
  Sender: FDA-Public Use
  Company Number: DE-JNJFOC-20180616044

PATIENT
  Age: 9 Decade
  Sex: Male
  Weight: 90 kg

DRUGS (1)
  1. IMBRUVICA [Suspect]
     Active Substance: IBRUTINIB
     Indication: CHRONIC LYMPHOCYTIC LEUKAEMIA
     Route: 048

REACTIONS (4)
  - Circulatory collapse [Unknown]
  - Cardiac failure [Unknown]
  - White blood cell count increased [Recovered/Resolved]
  - Atrial fibrillation [Unknown]
